FAERS Safety Report 6523758-4 (Version None)
Quarter: 2009Q4

REPORT INFORMATION
  Report Type: 
  Country: None (occurrence: None)
  Receive Date: 20091231
  Receipt Date: 20091221
  Transmission Date: 20100525
  Serious: Yes (Other)
  Sender: FDA-Public Use
  Company Number: US-PFIZER INC-2009314771

PATIENT
  Sex: Female

DRUGS (1)
  1. LIPITOR [Suspect]
     Dosage: UNK
     Dates: start: 20090301

REACTIONS (3)
  - ASTHENIA [None]
  - GAIT DISTURBANCE [None]
  - MYELODYSPLASTIC SYNDROME [None]
